FAERS Safety Report 21298423 (Version 2)
Quarter: 2022Q3

REPORT INFORMATION
  Report Type: Spontaneous
  Country: JP (occurrence: JP)
  Receive Date: 20220906
  Receipt Date: 20220922
  Transmission Date: 20221027
  Serious: Yes (Life-Threatening, Hospitalization, Other)
  Sender: FDA-Public Use
  Company Number: JP-PFIZER INC-PV202200056191

PATIENT
  Age: 91 Year
  Sex: Female
  Weight: 44 kg

DRUGS (8)
  1. PREGABALIN [Suspect]
     Active Substance: PREGABALIN
     Indication: Neuralgia
     Dosage: 150 MG, DAILY
     Route: 048
     Dates: start: 20220520, end: 20220703
  2. LYRICA [Suspect]
     Active Substance: PREGABALIN
     Indication: Neuralgia
     Dosage: 50 MG, 2X/DAY
     Route: 048
     Dates: start: 20180717, end: 20220519
  3. ELOBIXIBAT [Suspect]
     Active Substance: ELOBIXIBAT
     Indication: Constipation
     Dosage: 10 MG, DAILY
     Route: 048
     Dates: start: 20220519, end: 20220703
  4. TRAMADOL HYDROCHLORIDE [Concomitant]
     Active Substance: TRAMADOL HYDROCHLORIDE
     Indication: Pain
     Dosage: 200 MG, DAILY
     Route: 048
     Dates: start: 20180412
  5. CYMBALTA [Concomitant]
     Active Substance: DULOXETINE HYDROCHLORIDE
     Dosage: 20 MG, DAILY
     Route: 048
     Dates: start: 20190412, end: 20220703
  6. MAGNESIUM OXIDE [Concomitant]
     Active Substance: MAGNESIUM OXIDE
     Dosage: 1500 MG, DAILY
     Route: 048
     Dates: start: 20220225, end: 20220703
  7. SENNOSIDES [Concomitant]
     Active Substance: SENNOSIDES
     Dosage: 24 MG, DAILY
     Route: 048
     Dates: start: 20220225, end: 20220703
  8. HERBALS [Concomitant]
     Active Substance: HERBALS
     Dosage: 5 G, DAILY
     Route: 048
     Dates: start: 20201225, end: 20220703

REACTIONS (6)
  - Pulmonary oedema [Recovered/Resolved]
  - Somnolence [Unknown]
  - Malaise [Unknown]
  - Oedema [Unknown]
  - Dyspnoea exertional [Unknown]
  - Bedridden [Unknown]

NARRATIVE: CASE EVENT DATE: 20220601
